FAERS Safety Report 8918019 (Version 2)
Quarter: 2013Q4

REPORT INFORMATION
  Report Type: Spontaneous
  Country: US (occurrence: US)
  Receive Date: 20121120
  Receipt Date: 20131203
  Transmission Date: 20140711
  Serious: No
  Sender: FDA-Public Use
  Company Number: US-ASTRAZENECA-2012SE02877

PATIENT
  Age: 40 Year
  Sex: Female
  Weight: 66.7 kg

DRUGS (15)
  1. CLONAZEPAM [Concomitant]
     Indication: ANXIETY
     Route: 048
     Dates: start: 1998
  2. ROPINIROLE HCL [Concomitant]
     Indication: RESTLESS LEGS SYNDROME
     Route: 048
     Dates: start: 2001
  3. NEURONTIN [Concomitant]
     Indication: PERIPHERAL NERVE INJURY
     Route: 048
     Dates: start: 1996
  4. PROMETHAZINE [Concomitant]
     Indication: NAUSEA
     Route: 048
     Dates: start: 2001
  5. PROMETHAZINE [Concomitant]
     Indication: VOMITING
     Route: 048
     Dates: start: 2001
  6. HYDROXYZINE [Concomitant]
     Indication: SINUS DISORDER
     Dosage: 25MG BID PRN
     Route: 048
     Dates: start: 201311
  7. DOXYCYCLINE [Concomitant]
     Indication: INFECTION
     Route: 048
     Dates: start: 201311
  8. PREDNISONE [Concomitant]
     Indication: ANTIINFLAMMATORY THERAPY
     Route: 048
     Dates: start: 1996
  9. SHOTS IN HIPS AND KNEES [Concomitant]
     Indication: ANTIINFLAMMATORY THERAPY
     Dosage: UNKNOWN ONCE EVERY SIX MONTHS
     Dates: start: 1993
  10. NEXIUM [Suspect]
     Indication: GASTROOESOPHAGEAL REFLUX DISEASE
     Route: 048
     Dates: start: 2001, end: 20131107
  11. ATENOLOL [Suspect]
     Indication: BLOOD PRESSURE ABNORMAL
     Route: 048
     Dates: start: 1998
  12. PRILOSEC [Suspect]
     Indication: GASTROOESOPHAGEAL REFLUX DISEASE
     Route: 048
     Dates: end: 2001
  13. ESTRADIOL [Concomitant]
     Indication: HORMONE THERAPY
     Route: 048
     Dates: start: 2001
  14. PREMARIN [Concomitant]
     Indication: HORMONE THERAPY
     Dates: end: 2001
  15. CYCLOBENZAPRINE [Concomitant]
     Indication: MUSCLE RELAXANT THERAPY
     Route: 048
     Dates: start: 2001

REACTIONS (13)
  - Chest pain [Unknown]
  - Systemic lupus erythematosus [Unknown]
  - Anxiety [Recovered/Resolved]
  - Multiple allergies [Unknown]
  - Sinusitis [Unknown]
  - Weight fluctuation [Unknown]
  - Gastrooesophageal reflux disease [Unknown]
  - Dyspepsia [Unknown]
  - Malaise [Unknown]
  - Headache [Unknown]
  - Diarrhoea [Unknown]
  - Nausea [Unknown]
  - Drug dose omission [Unknown]
